FAERS Safety Report 5885587-4 (Version None)
Quarter: 2008Q3

REPORT INFORMATION
  Report Type: 
  Country: None (occurrence: None)
  Receive Date: 20080916
  Receipt Date: 20080902
  Transmission Date: 20090109
  Serious: Yes (Hospitalization)
  Sender: FDA-Public Use
  Company Number: US-AMGEN-US045187

PATIENT
  Age: 51 Year
  Sex: Female

DRUGS (3)
  1. ETANERCEPT [Suspect]
     Indication: WEGENER'S GRANULOMATOSIS
     Route: 058
  2. CYCLOPHOSPHAMIDE [Suspect]
  3. METHOTREXATE [Concomitant]

REACTIONS (1)
  - RENAL CELL CARCINOMA [None]
